FAERS Safety Report 6158909-7 (Version None)
Quarter: 2009Q2

REPORT INFORMATION
  Report Type: 
  Country: None (occurrence: None)
  Receive Date: 20090410
  Receipt Date: 20090407
  Transmission Date: 20091009
  Serious: Yes (Hospitalization)
  Sender: FDA-Public Use
  Company Number: 2009020048

PATIENT
  Sex: Male
  Weight: 23 kg

DRUGS (5)
  1. SANDOGLOBULIN [Suspect]
     Indication: KAWASAKI'S DISEASE
     Dosage: SEE IMAGE
     Route: 041
     Dates: start: 20090308, end: 20090309
  2. IMMUNE GLOBULIN INTRAVENOUS (HUMAN) [Suspect]
  3. IMMUNE GLOBULIN INTRAVENOUS (HUMAN) [Suspect]
  4. IMMUNE GLOBULIN INTRAVENOUS (HUMAN) [Suspect]
  5. ASPEGIC 1000 [Concomitant]

REACTIONS (5)
  - ATELECTASIS [None]
  - BLOOD CREATINE PHOSPHOKINASE INCREASED [None]
  - HYPONATRAEMIA [None]
  - MYALGIA [None]
  - RENAL FAILURE ACUTE [None]
